FAERS Safety Report 21437635 (Version 5)
Quarter: 2023Q2

REPORT INFORMATION
  Report Type: Spontaneous
  Country: FR (occurrence: FR)
  Receive Date: 20221011
  Receipt Date: 20230505
  Transmission Date: 20230721
  Serious: Yes (Hospitalization, Other)
  Sender: FDA-Public Use
  Company Number: FR-JNJFOC-20220925253

PATIENT
  Age: 72 Year
  Sex: Male
  Weight: 64 kg

DRUGS (14)
  1. GABAPENTIN [Suspect]
     Active Substance: GABAPENTIN
     Indication: Dizziness
     Dosage: 100 0.13 DAY
     Route: 048
  2. GABAPENTIN [Suspect]
     Active Substance: GABAPENTIN
     Dosage: 100 0.17 DAY
     Route: 048
  3. GABAPENTIN [Suspect]
     Active Substance: GABAPENTIN
     Indication: Dizziness
     Dosage: UNK, TWO TIMES A DAY
     Route: 048
  4. GABAPENTIN [Suspect]
     Active Substance: GABAPENTIN
     Dosage: 100 (0.13 DAY)
     Route: 048
  5. GABAPENTIN [Suspect]
     Active Substance: GABAPENTIN
     Dosage: 100 (0.17 DAY)
     Route: 048
  6. SELEXIPAG [Suspect]
     Active Substance: SELEXIPAG
     Indication: Pulmonary arterial hypertension
     Dosage: 200 MICROGRAM, TWO TIMES A DAY
     Route: 048
     Dates: start: 20220820, end: 20220823
  7. SELEXIPAG [Suspect]
     Active Substance: SELEXIPAG
     Dosage: 200 MICROGRAM, TWO TIMES A DAY
     Route: 048
     Dates: start: 20220825
  8. SELEXIPAG [Suspect]
     Active Substance: SELEXIPAG
     Dosage: 400 MICROGRAM, TWO TIMES A DAY
     Route: 048
     Dates: start: 20220901
  9. SELEXIPAG [Suspect]
     Active Substance: SELEXIPAG
     Dosage: 600 MICROGRAM, TWO TIMES A DAY
     Route: 048
     Dates: start: 20220908
  10. SELEXIPAG [Suspect]
     Active Substance: SELEXIPAG
     Dosage: 400 MICROGRAM, TWO TIMES A DAY
     Route: 048
     Dates: start: 20220912
  11. TRACLEER [Suspect]
     Active Substance: BOSENTAN
     Indication: Pulmonary arterial hypertension
     Dosage: UNK
     Route: 048
  12. TADALAFIL [Concomitant]
     Active Substance: TADALAFIL
     Indication: Pulmonary arterial hypertension
     Dosage: UNK
     Route: 065
  13. OXYGEN [Concomitant]
     Active Substance: OXYGEN
     Indication: Product used for unknown indication
     Dosage: 3 LITER (AT REST)
     Route: 065
  14. OXYGEN [Concomitant]
     Active Substance: OXYGEN
     Dosage: 6 LITER (ON EXERTION)
     Route: 065

REACTIONS (17)
  - Arrhythmia [Not Recovered/Not Resolved]
  - Hospitalisation [Unknown]
  - Myalgia [Recovered/Resolved]
  - Retinal detachment [Not Recovered/Not Resolved]
  - Loss of consciousness [Recovered/Resolved]
  - Pain in jaw [Recovered/Resolved]
  - Vision blurred [Not Recovered/Not Resolved]
  - Hypoaesthesia [Recovered/Resolved]
  - Oxygen saturation decreased [Not Recovered/Not Resolved]
  - Vertigo [Unknown]
  - Dyspnoea exertional [Recovered/Resolved]
  - Nasopharyngitis [Not Recovered/Not Resolved]
  - Oropharyngeal pain [Recovered/Resolved]
  - Product dose omission issue [Unknown]
  - Epistaxis [Not Recovered/Not Resolved]
  - Loose tooth [Not Recovered/Not Resolved]
  - Scratch [Unknown]

NARRATIVE: CASE EVENT DATE: 20220908
